FAERS Safety Report 5294602-0 (Version None)
Quarter: 2007Q2

REPORT INFORMATION
  Report Type: 
  Country: None (occurrence: None)
  Receive Date: 20070412
  Receipt Date: 20070403
  Transmission Date: 20071010
  Serious: Yes (Hospitalization)
  Sender: FDA-Public Use
  Company Number: DE-GLAXOSMITHKLINE-A0634289A

PATIENT
  Age: 42 Year
  Sex: Female
  Weight: 70 kg

DRUGS (1)
  1. LAPATINIB [Suspect]
     Dosage: 750MG TWICE PER DAY
     Route: 048
     Dates: start: 20060929, end: 20061222

REACTIONS (4)
  - HEADACHE [None]
  - NAUSEA [None]
  - VISUAL ACUITY REDUCED [None]
  - VOMITING [None]
